FAERS Safety Report 5787141-1 (Version None)
Quarter: 2008Q2

REPORT INFORMATION
  Report Type: 
  Country: None (occurrence: None)
  Receive Date: 20080625
  Receipt Date: 20071205
  Transmission Date: 20081010
  Serious: No
  Sender: FDA-Public Use
  Company Number: US-ASTRAZENECA-2007UW21310

PATIENT
  Age: 11 Year
  Sex: Male
  Weight: 36.3 kg

DRUGS (5)
  1. PULMICORT FLEXHALER [Suspect]
     Indication: ASTHMA
     Route: 055
     Dates: start: 20070725
  2. ALLEGRA [Concomitant]
  3. RHINOCORT [Concomitant]
     Route: 045
  4. ALBUTEROL [Concomitant]
  5. PULMICORT [Concomitant]
     Route: 055

REACTIONS (2)
  - ASTHMA [None]
  - GROWTH RETARDATION [None]
